FAERS Safety Report 23423061 (Version 5)
Quarter: 2024Q1

REPORT INFORMATION
  Report Type: Spontaneous
  Country: US (occurrence: None)
  Receive Date: 20240119
  Receipt Date: 20240319
  Transmission Date: 20240409
  Serious: Yes (Hospitalization, Other)
  Sender: FDA-Public Use
  Company Number: US-FARMAPROD-202401-0086

PATIENT
  Age: 68 Year
  Sex: Female

DRUGS (9)
  1. OXERVATE [Suspect]
     Active Substance: CENEGERMIN-BKBJ
     Indication: Neurotrophic keratopathy
     Route: 047
     Dates: start: 20231228
  2. STRENSIQ [Concomitant]
     Active Substance: ASFOTASE ALFA
     Dosage: 28 MG / 0.7 ML VIAL
  3. MAGNESIUM [Concomitant]
     Active Substance: MAGNESIUM
  4. VITAMIN D2 [Concomitant]
     Active Substance: ERGOCALCIFEROL
  5. POTASSIUM [Concomitant]
     Active Substance: POTASSIUM
     Dosage: 595 (99)  MG
  6. CYCLOSPORINE [Concomitant]
     Active Substance: CYCLOSPORINE
  7. NITROGLYCERIN [Concomitant]
     Active Substance: NITROGLYCERIN
  8. SYNTHROID [Concomitant]
     Active Substance: LEVOTHYROXINE SODIUM
  9. PLAVIX [Concomitant]
     Active Substance: CLOPIDOGREL BISULFATE

REACTIONS (20)
  - Pneumonia [Unknown]
  - Respiratory disorder [Unknown]
  - Cardiac disorder [Unknown]
  - Sinus congestion [Unknown]
  - Cough [Unknown]
  - Dyspnoea [Unknown]
  - Vomiting [Unknown]
  - Malaise [Unknown]
  - Dizziness [Unknown]
  - Hypotension [Unknown]
  - Breast pain [Unknown]
  - Road traffic accident [Unknown]
  - Back pain [Unknown]
  - Neck injury [Unknown]
  - Fall [Unknown]
  - Product dose omission issue [Unknown]
  - Therapy interrupted [Unknown]
  - Eye swelling [Unknown]
  - Eye pain [Recovered/Resolved]
  - Intentional product misuse [Unknown]

NARRATIVE: CASE EVENT DATE: 20240101
